FAERS Safety Report 16717904 (Version 2)
Quarter: 2019Q4

REPORT INFORMATION
  Report Type: Report from Study
  Country: US (occurrence: US)
  Receive Date: 20190819
  Receipt Date: 20191003
  Transmission Date: 20200122
  Serious: Yes (Death, Other)
  Sender: FDA-Public Use
  Company Number: US-TAKEDA-2019TUS031505

PATIENT
  Age: 83 Year
  Sex: Male

DRUGS (1)
  1. PONATINIB [Suspect]
     Active Substance: PONATINIB
     Indication: ACUTE LYMPHOCYTIC LEUKAEMIA RECURRENT
     Dosage: 30 MILLIGRAM, QD
     Route: 048
     Dates: start: 20190218

REACTIONS (3)
  - Emotional disorder [Unknown]
  - Acute lymphocytic leukaemia [Fatal]
  - Breast mass [Unknown]

NARRATIVE: CASE EVENT DATE: 20190724
